FAERS Safety Report 13675443 (Version 3)
Quarter: 2017Q3

REPORT INFORMATION
  Report Type: Spontaneous
  Country: JP (occurrence: JP)
  Receive Date: 20170621
  Receipt Date: 20170808
  Transmission Date: 20171127
  Serious: Yes (Death, Hospitalization, Other)
  Sender: FDA-Public Use
  Company Number: JP-VIFOR (INTERNATIONAL) INC.-VIT-2017-06525

PATIENT
  Age: 64 Year
  Sex: Female

DRUGS (1)
  1. MIRCERA [Suspect]
     Active Substance: METHOXY POLYETHYLENE GLYCOL-EPOETIN BETA
     Indication: MYELODYSPLASTIC SYNDROME
     Route: 065
     Dates: start: 2013

REACTIONS (13)
  - Extramedullary haemopoiesis [Unknown]
  - Fall [Unknown]
  - Fatigue [Unknown]
  - Septic shock [Unknown]
  - Death [Fatal]
  - Osteoporosis [Unknown]
  - Drug ineffective [Unknown]
  - Off label use [Unknown]
  - Hepatosplenomegaly [Unknown]
  - Refractory cytopenia with multilineage dysplasia [Unknown]
  - Serum ferritin increased [Unknown]
  - Femur fracture [Unknown]
  - Cardiac murmur [Unknown]

NARRATIVE: CASE EVENT DATE: 201401
